FAERS Safety Report 15719022 (Version 1)
Quarter: 2018Q4

REPORT INFORMATION
  Report Type: Spontaneous
  Country: US (occurrence: US)
  Receive Date: 20181213
  Receipt Date: 20181213
  Transmission Date: 20190205
  Serious: Yes (Life-Threatening, Other)
  Sender: FDA-Public Use
  Company Number: US-PFIZER INC-2018509353

PATIENT
  Age: 34 Year
  Sex: Male

DRUGS (1)
  1. LIOTHYRONINE SODIUM. [Suspect]
     Active Substance: LIOTHYRONINE SODIUM
     Dosage: 50 UG, DAILY

REACTIONS (3)
  - Intentional product misuse [Unknown]
  - Hyperthyroidism [Unknown]
  - Pulmonary embolism [Recovering/Resolving]
